FAERS Safety Report 6767635-2 (Version None)
Quarter: 2010Q2

REPORT INFORMATION
  Report Type: 
  Country: None (occurrence: None)
  Receive Date: 20100610
  Receipt Date: 20100527
  Transmission Date: 20101027
  Serious: Yes (Hospitalization, Disabling, Other)
  Sender: FDA-Public Use
  Company Number: 604235

PATIENT
  Age: 72 Year

DRUGS (11)
  1. METHOTREXATE [Suspect]
     Indication: RHEUMATOID ARTHRITIS
     Dosage: IM
     Route: 030
     Dates: start: 20030101, end: 20090521
  2. ASPIRIN [Concomitant]
  3. DOXAZOSIN MESYLATE [Concomitant]
  4. FELODIPINE [Concomitant]
  5. FERROUS SULFATE TAB [Concomitant]
  6. FLUOXETINE [Concomitant]
  7. INDAPAMIDE [Concomitant]
  8. IRBESARTAN [Concomitant]
  9. LANSOPRAZOLE [Concomitant]
  10. PROCYCLIDINE HYDROCHLORIDE [Concomitant]
  11. ROSUVASTATIN [Concomitant]

REACTIONS (16)
  - AMNESIA [None]
  - ANXIETY [None]
  - CONDITION AGGRAVATED [None]
  - CONFUSIONAL STATE [None]
  - DEPRESSION [None]
  - DRUG INTERACTION [None]
  - DYSKINESIA [None]
  - EXTRAPYRAMIDAL DISORDER [None]
  - HEADACHE [None]
  - INSOMNIA [None]
  - MASKED FACIES [None]
  - MOBILITY DECREASED [None]
  - MOUTH ULCERATION [None]
  - NECK PAIN [None]
  - SALIVARY HYPERSECRETION [None]
  - TARDIVE DYSKINESIA [None]
